FAERS Safety Report 25865309 (Version 2)
Quarter: 2025Q4

REPORT INFORMATION
  Report Type: Spontaneous
  Country: US (occurrence: US)
  Receive Date: 20250930
  Receipt Date: 20251006
  Transmission Date: 20260117
  Serious: No
  Sender: BAYER HEALTHCARE LLC
  Company Number: US-BAYER-2025A127878

PATIENT
  Age: 70 Year
  Sex: Male

DRUGS (2)
  1. ASTEPRO [Suspect]
     Active Substance: AZELASTINE HYDROCHLORIDE
     Dosage: 2 PUFF(S), QD
     Route: 045
     Dates: start: 20250922, end: 20250922
  2. ASTEPRO ALLERGY [Suspect]
     Active Substance: AZELASTINE HYDROCHLORIDE
     Dosage: 2 PUFF(S), QD
     Route: 045
     Dates: start: 20250922, end: 20250922

REACTIONS (1)
  - Sinus pain [Recovered/Resolved with Sequelae]

NARRATIVE: CASE EVENT DATE: 20250922
